FAERS Safety Report 8833777 (Version 1)
Quarter: 2012Q4

REPORT INFORMATION
  Report Type: Spontaneous
  Country: FR (occurrence: None)
  Receive Date: 20121005
  Receipt Date: 20121005
  Transmission Date: 20130627
  Serious: Yes (Hospitalization)
  Sender: FDA-Public Use
  Company Number: ABR_00650_2012

PATIENT
  Age: 11 Year
  Sex: Female
  Weight: 70 kg

DRUGS (1)
  1. ERYTHROCINE [Suspect]
     Indication: PERTUSSIS
     Dosage: (DF Oral)
     Route: 048
     Dates: start: 20120824, end: 20120904

REACTIONS (5)
  - Hepatocellular injury [None]
  - Hepatomegaly [None]
  - Liver injury [None]
  - Pyrexia [None]
  - Jaundice [None]
